FAERS Safety Report 9831464 (Version 2)
Quarter: 2014Q1

REPORT INFORMATION
  Report Type: Spontaneous
  Country: MT (occurrence: MT)
  Receive Date: 20140121
  Receipt Date: 20140327
  Transmission Date: 20141002
  Serious: Yes (Life-Threatening)
  Sender: FDA-Public Use
  Company Number: MT-AMGEN-MLTSP2014003647

PATIENT
  Age: 30 Year
  Sex: Female

DRUGS (6)
  1. ENBREL [Suspect]
     Indication: RHEUMATOID ARTHRITIS
     Dosage: 50 MG, WEEKLY
     Route: 065
     Dates: start: 20120720
  2. ENBREL [Suspect]
     Dosage: 50 MG, WEEKLY
     Route: 065
     Dates: end: 20121214
  3. FOLIC ACID [Concomitant]
     Indication: RHEUMATOID ARTHRITIS
     Dosage: UNK MG, WEEKLY
     Dates: start: 2010
  4. YASMIN [Concomitant]
     Indication: POLYCYSTIC OVARIES
     Dosage: 1 TABLET, DAILY
     Dates: start: 2009
  5. METHOTREXATE [Concomitant]
     Indication: RHEUMATOID ARTHRITIS
     Dosage: 10 MG, WEEKLY
     Dates: start: 2010
  6. PREDNISOLONE [Concomitant]
     Indication: RHEUMATOID ARTHRITIS
     Dosage: 5 MG, DAILY
     Dates: start: 2010

REACTIONS (3)
  - Swelling face [Recovered/Resolved]
  - Erythema [Recovered/Resolved]
  - Hypersensitivity [Recovered/Resolved]
